FAERS Safety Report 8803505 (Version 2)
Quarter: 2012Q4

REPORT INFORMATION
  Report Type: 
  Country: JP (occurrence: JP)
  Receive Date: 20120924
  Receipt Date: 20121209
  Transmission Date: 20130627
  Serious: No
  Sender: FDA-Public Use
  Company Number: JP-009507513-1209JPN006371

PATIENT
  Age: 70 Year
  Sex: Female
  Weight: 47 kg

DRUGS (10)
  1. PEGINTRON [Suspect]
     Indication: HEPATITIS C
     Dosage: 1.5 Microgram per kilogram, qw
     Route: 058
     Dates: start: 20120521, end: 20120521
  2. PEGINTRON [Suspect]
     Dosage: 1.5 Microgram per kilogram, qw
     Route: 058
     Dates: start: 20120521, end: 20120604
  3. PEGINTRON [Suspect]
     Dosage: 1.5 Microgram per kilogram, UNK
     Route: 058
     Dates: start: 20120802, end: 20120813
  4. REBETOL [Suspect]
     Indication: HEPATITIS C
     Dosage: 600 mg, qd
     Route: 048
     Dates: start: 20120521, end: 20120521
  5. REBETOL [Suspect]
     Dosage: 600 mg, qd
     Dates: start: 20120521, end: 20120528
  6. REBETOL [Suspect]
     Dosage: 600 mg, qd
     Route: 048
     Dates: start: 20120521, end: 20120604
  7. REBETOL [Suspect]
     Dosage: 600 mg, qd
     Route: 048
     Dates: start: 20120802, end: 20120813
  8. TELAVIC [Suspect]
     Indication: HEPATITIS C
     Dosage: 1500 mg, qd
     Route: 048
     Dates: start: 20120521, end: 20120521
  9. TELAVIC [Suspect]
     Dosage: 1500 mg, qd
     Route: 048
     Dates: start: 20120521, end: 20120528
  10. TELAVIC [Suspect]
     Dosage: 1500 mg, qd
     Route: 048
     Dates: start: 20120802, end: 20120813

REACTIONS (2)
  - Anaemia [Recovering/Resolving]
  - Anaemia [Recovering/Resolving]
